FAERS Safety Report 4454382-5 (Version None)
Quarter: 2004Q3

REPORT INFORMATION
  Report Type: 
  Country: None (occurrence: None)
  Receive Date: 20040826
  Receipt Date: 20040528
  Transmission Date: 20050211
  Serious: No
  Sender: FDA-Public Use
  Company Number: WAES 0406USA00033

PATIENT
  Age: 71 Year
  Sex: Female
  Weight: 58.0604 kg

DRUGS (6)
  1. ZETIA [Suspect]
     Indication: HYPERCHOLESTEROLAEMIA
     Dosage: 10 MG, DAILY; PO
     Route: 048
     Dates: start: 20030901, end: 20040428
  2. TOPROL-XL [Concomitant]
  3. ZESTRIL [Concomitant]
  4. ZOCOR [Concomitant]
  5. ASPIRIN [Concomitant]
  6. ISOSORBIDE MONONITRATE [Concomitant]

REACTIONS (1)
  - HEPATIC ENZYME INCREASED [None]
